FAERS Safety Report 6904188-X (Version None)
Quarter: 2010Q3

REPORT INFORMATION
  Report Type: 
  Country: None (occurrence: None)
  Receive Date: 20100804
  Receipt Date: 20090401
  Transmission Date: 20110219
  Serious: No
  Sender: FDA-Public Use
  Company Number: US-PFIZER INC-2009170517

PATIENT
  Sex: Female
  Weight: 77.1 kg

DRUGS (3)
  1. LYRICA [Suspect]
     Indication: MYOFASCIAL PAIN SYNDROME
     Dosage: UNK
     Dates: start: 20090116, end: 20090201
  2. TRAMADOL [Concomitant]
     Dosage: UNK
     Dates: start: 20090209
  3. NORCO [Concomitant]
     Dosage: UNK
     Dates: start: 20090223

REACTIONS (1)
  - SOMNAMBULISM [None]
